FAERS Safety Report 7579892-3 (Version None)
Quarter: 2011Q2

REPORT INFORMATION
  Report Type: 
  Country: None (occurrence: None)
  Receive Date: 20110629
  Receipt Date: 20110616
  Transmission Date: 20111010
  Serious: Yes (Other)
  Sender: FDA-Public Use
  Company Number: US-ELI_LILLY_AND_COMPANY-US200803004081

PATIENT
  Sex: Female

DRUGS (11)
  1. TYLENOL (CAPLET) [Concomitant]
     Dosage: 2 D/F, 2/D
  2. NIACIN [Concomitant]
  3. ASPIRIN [Concomitant]
  4. ADVIL LIQUI-GELS [Concomitant]
     Dosage: 3 D/F, DAILY (1/D)
  5. ADVICOR [Concomitant]
     Dosage: 500 MG, UNK
  6. FISH OIL [Concomitant]
  7. FORTEO [Suspect]
     Indication: OSTEOPOROSIS
     Dosage: UNK
     Dates: start: 20080201, end: 20090101
  8. SYNTHROID [Concomitant]
  9. CITRUCEL [Concomitant]
  10. AMBIEN [Concomitant]
  11. METENIX 5 [Concomitant]

REACTIONS (3)
  - INJECTION SITE HAEMATOMA [None]
  - FALL [None]
  - HIP FRACTURE [None]
